FAERS Safety Report 19290292 (Version 1)
Quarter: 2021Q2

REPORT INFORMATION
  Report Type: Spontaneous
  Country: US (occurrence: US)
  Receive Date: 20210521
  Receipt Date: 20210521
  Transmission Date: 20210717
  Serious: No
  Sender: FDA-Public Use
  Company Number: US-RADIUS HEALTH INC.-2021US000670

PATIENT
  Age: 70 Year
  Sex: Female

DRUGS (1)
  1. TYMLOS [Suspect]
     Active Substance: ABALOPARATIDE
     Indication: OSTEOPOROSIS
     Dosage: 80 MCG, QD
     Route: 058
     Dates: start: 20210218, end: 20210227

REACTIONS (10)
  - Palpitations [Unknown]
  - Feeling abnormal [Unknown]
  - Hypertension [Unknown]
  - Nausea [Unknown]
  - Abdominal pain lower [Unknown]
  - Headache [Unknown]
  - Epistaxis [Recovered/Resolved]
  - Chest discomfort [Unknown]
  - Heart rate increased [Unknown]
  - Dizziness [Unknown]

NARRATIVE: CASE EVENT DATE: 202102
